FAERS Safety Report 9112470 (Version 1)
Quarter: 2013Q1

REPORT INFORMATION
  Report Type: Spontaneous
  Country: US (occurrence: US)
  Receive Date: 20130211
  Receipt Date: 20130211
  Transmission Date: 20140127
  Serious: Yes (Other)
  Sender: FDA-Public Use
  Company Number: US-BAYER-2013-017112

PATIENT
  Age: 46 Year
  Sex: Female
  Weight: 100.23 kg

DRUGS (2)
  1. YASMIN [Suspect]
  2. COMBIVENT [IPRATROPIUM BROMIDE,SALBUTAMOL] [Concomitant]
     Indication: ASTHMA

REACTIONS (1)
  - Deep vein thrombosis [None]
